FAERS Safety Report 21950637 (Version 2)
Quarter: 2023Q1

REPORT INFORMATION
  Report Type: Spontaneous
  Country: IT (occurrence: IT)
  Receive Date: 20230203
  Receipt Date: 20230302
  Transmission Date: 20230417
  Serious: Yes (Other)
  Sender: FDA-Public Use
  Company Number: IT-TEVA-2023-IT-2851692

PATIENT
  Age: 73 Year
  Sex: Male

DRUGS (4)
  1. PREDNISONE [Suspect]
     Active Substance: PREDNISONE
     Indication: Plasma cell myeloma
     Dosage: RECEIVED 9 CYCLES
     Route: 065
     Dates: start: 201902, end: 202003
  2. VELCADE [Suspect]
     Active Substance: BORTEZOMIB
     Indication: Plasma cell myeloma
     Dosage: RECEIVED 9 CYCLES
     Route: 065
     Dates: start: 201902, end: 202003
  3. MELPHALAN [Suspect]
     Active Substance: MELPHALAN
     Indication: Plasma cell myeloma
     Dosage: RECEIVED 9 CYCLES
     Route: 065
     Dates: start: 201902, end: 202003
  4. DEXAMETHASONE [Concomitant]
     Active Substance: DEXAMETHASONE
     Indication: Plasma cell myeloma
     Route: 065
     Dates: start: 2020

REACTIONS (3)
  - Neuropathy peripheral [Unknown]
  - Decreased appetite [Unknown]
  - Weight decreased [Unknown]
